FAERS Safety Report 7298220-4 (Version None)
Quarter: 2011Q1

REPORT INFORMATION
  Report Type: 
  Country: None (occurrence: None)
  Receive Date: 20110217
  Receipt Date: 20101223
  Transmission Date: 20110831
  Serious: Yes (Other)
  Sender: FDA-Public Use
  Company Number: US-BAYER-201034278NA

PATIENT
  Sex: Female
  Weight: 84 kg

DRUGS (5)
  1. YASMIN [Suspect]
     Indication: UTERINE HAEMORRHAGE
     Route: 048
     Dates: start: 20060201, end: 20071101
  2. LEXAPRO [Concomitant]
     Indication: ANXIETY
     Dosage: UNK
     Dates: start: 20050101
  3. ZYRTEC [Concomitant]
  4. SINGULAIR [Concomitant]
  5. VITAMIN D [Concomitant]

REACTIONS (12)
  - ANXIETY [None]
  - BILIARY DYSKINESIA [None]
  - WEIGHT INCREASED [None]
  - ABDOMINAL PAIN UPPER [None]
  - DYSPEPSIA [None]
  - MUSCULAR WEAKNESS [None]
  - CHOLECYSTITIS CHRONIC [None]
  - CONSTIPATION [None]
  - PAIN [None]
  - MUSCLE SPASMS [None]
  - NAUSEA [None]
  - GALLBLADDER DISORDER [None]
